FAERS Safety Report 10113524 (Version 1)
Quarter: 2014Q2

REPORT INFORMATION
  Report Type: Spontaneous
  Country: US (occurrence: US)
  Receive Date: 20140425
  Receipt Date: 20140425
  Transmission Date: 20141212
  Serious: Yes (Hospitalization)
  Sender: FDA-Public Use
  Company Number: US-BAYER-2014-059714

PATIENT
  Age: 51 Year
  Sex: Female
  Weight: 77.1 kg

DRUGS (9)
  1. YAZ [Suspect]
  2. IBUPROFEN [Concomitant]
  3. ALEVE TABLET [Concomitant]
  4. LUNESTA [Concomitant]
     Dosage: 2 MG, UNK
  5. LEVAQUIN [Concomitant]
  6. ALBUTEROL [Concomitant]
  7. ADVAIR [Concomitant]
  8. HYDROCHLOROTHIAZIDE [Concomitant]
  9. DARVOCET [Concomitant]

REACTIONS (1)
  - Deep vein thrombosis [None]
